FAERS Safety Report 14208546 (Version 1)
Quarter: 2017Q4

REPORT INFORMATION
  Report Type: Spontaneous
  Country: US (occurrence: US)
  Receive Date: 20171121
  Receipt Date: 20171121
  Transmission Date: 20180321
  Serious: Yes (Hospitalization, Other)
  Sender: FDA-Public Use
  Company Number: US-SUN PHARMACEUTICAL INDUSTRIES LTD-2017SUN00383

PATIENT
  Age: 10 Year
  Sex: Female

DRUGS (2)
  1. WARFARIN [Suspect]
     Active Substance: WARFARIN
     Indication: CORONARY ARTERY ANEURYSM
     Dosage: UNK
     Route: 065
  2. ASPIRIN. [Suspect]
     Active Substance: ASPIRIN
     Indication: CORONARY ARTERY ANEURYSM
     Dosage: UNK
     Route: 065

REACTIONS (7)
  - Coronary vascular graft occlusion [Unknown]
  - Anaemia [Unknown]
  - Epistaxis [Unknown]
  - Pericardial haemorrhage [Unknown]
  - International normalised ratio decreased [Unknown]
  - Menorrhagia [Unknown]
  - International normalised ratio increased [Unknown]
